FAERS Safety Report 23173952 (Version 1)
Quarter: 2023Q4

REPORT INFORMATION
  Report Type: Spontaneous
  Country: US (occurrence: US)
  Receive Date: 20231111
  Receipt Date: 20231111
  Transmission Date: 20240109
  Serious: No
  Sender: FDA-Public Use
  Company Number: US-SA-SAC20231107000142

PATIENT
  Age: 65 Year
  Sex: Female

DRUGS (22)
  1. DUPIXENT [Suspect]
     Active Substance: DUPILUMAB
     Indication: Asthma
     Dosage: 300 MG, QOW
     Route: 058
  2. SINGULAIR [Concomitant]
     Active Substance: MONTELUKAST SODIUM
  3. TRELEGY ELLIPTA [Concomitant]
     Active Substance: FLUTICASONE FUROATE\UMECLIDINIUM BROMIDE\VILANTEROL TRIFENATATE
  4. BENAZEPRIL [Concomitant]
     Active Substance: BENAZEPRIL HYDROCHLORIDE
     Dosage: UNK
  5. PEPCID [Concomitant]
     Active Substance: FAMOTIDINE
  6. PRAVASTATIN [Concomitant]
     Active Substance: PRAVASTATIN
  7. AMBIEN [Concomitant]
     Active Substance: ZOLPIDEM TARTRATE
  8. ASPIRIN [Concomitant]
     Active Substance: ASPIRIN
  9. ATENOLOL [Concomitant]
     Active Substance: ATENOLOL
  10. BUDESONIDE [Concomitant]
     Active Substance: BUDESONIDE
  11. DALIRESP [Concomitant]
     Active Substance: ROFLUMILAST
  12. FUROSEMIDE [Concomitant]
     Active Substance: FUROSEMIDE
  13. KEPPRA [Concomitant]
     Active Substance: LEVETIRACETAM
  14. PANTOPRAZOLE [Concomitant]
     Active Substance: PANTOPRAZOLE
  15. PREGABALIN [Concomitant]
     Active Substance: PREGABALIN
  16. SERTRALINE [Concomitant]
     Active Substance: SERTRALINE HYDROCHLORIDE
  17. TIZANIDINE [Concomitant]
     Active Substance: TIZANIDINE
  18. VENTOLIN HFA [Concomitant]
     Active Substance: ALBUTEROL SULFATE
  19. VITAMIN D NOS [Concomitant]
     Active Substance: VITAMIN D NOS
  20. CENTRUM SILVER [ASCORBIC ACID;BETACAROTENE;BIOTIN;CALCIUM PHOSPHATE;CH [Concomitant]
  21. NITROGLYCERIN [Concomitant]
     Active Substance: NITROGLYCERIN
  22. AMITRIPTYLINE [Concomitant]
     Active Substance: AMITRIPTYLINE

REACTIONS (3)
  - Respiratory tract infection [Unknown]
  - Cough [Unknown]
  - Chronic obstructive pulmonary disease [Unknown]

NARRATIVE: CASE EVENT DATE: 20230101
